FAERS Safety Report 5775135-1 (Version None)
Quarter: 2008Q2

REPORT INFORMATION
  Report Type: 
  Country: None (occurrence: None)
  Receive Date: 20080612
  Receipt Date: 20080528
  Transmission Date: 20081010
  Serious: Yes (Hospitalization)
  Sender: FDA-Public Use
  Company Number: 2008001243

PATIENT
  Age: 64 Year
  Sex: Male
  Weight: 63 kg

DRUGS (6)
  1. ERLOTINIB (ERLOTINIB HCL) (TABLET) (ERLOTINIB HCL) [Suspect]
     Indication: OESOPHAGEAL CARCINOMA
     Dosage: (100 MG,QD) ORAL
     Route: 048
     Dates: start: 20080424, end: 20080503
  2. BEVACIZUMAB (INJECTION FOR INFUSION) [Suspect]
     Dosage: (15 MG/KG, WEEKS 1 AND 4), INTRAVENOUS
     Route: 042
     Dates: start: 20080424
  3. PACLITAXEL [Suspect]
     Dosage: (200 MG/M2, WEEKS 1 AND 4), INTRAVENOUS
     Route: 042
     Dates: start: 20080424
  4. CARBOPLATIN [Suspect]
     Dosage: (5, WEEKS 1 AND 4), INTRAVENOUS
     Route: 042
     Dates: start: 20080424
  5. 5-FU (FLUOROURACIL) (FLUOROURACIL) (INJECTION FOR INFUSION) [Suspect]
     Dosage: 9(226 MG/M2, DAYS 1-35), INTRAVENOUS
     Route: 042
     Dates: start: 20080424
  6. RADIATION THERAPY [Suspect]
     Indication: MULTIPLE MYELOMA
     Dosage: (1.8, QD)
     Dates: start: 20080424

REACTIONS (9)
  - CHOKING [None]
  - DEHYDRATION [None]
  - DIARRHOEA [None]
  - EPISTAXIS [None]
  - NAUSEA [None]
  - OESOPHAGITIS [None]
  - ORAL PAIN [None]
  - VOMITING [None]
  - WEIGHT DECREASED [None]
